FAERS Safety Report 21526143 (Version 1)
Quarter: 2022Q4

REPORT INFORMATION
  Report Type: Spontaneous
  Country: CN (occurrence: CN)
  Receive Date: 20221031
  Receipt Date: 20221031
  Transmission Date: 20230113
  Serious: Yes (Hospitalization, Other)
  Sender: FDA-Public Use
  Company Number: None

PATIENT
  Age: 49 Year
  Sex: Female
  Weight: 54.5 kg

DRUGS (4)
  1. MESNA [Suspect]
     Active Substance: MESNA
     Indication: Ewing^s sarcoma
     Dosage: 400 MG, ONCE DAILY
     Route: 042
     Dates: start: 20220415, end: 20220415
  2. CYCLOPHOSPHAMIDE [Suspect]
     Active Substance: CYCLOPHOSPHAMIDE
     Indication: Ewing^s sarcoma
     Dosage: 1000 MG, ONCE DAILY
     Route: 042
     Dates: start: 20220415, end: 20220415
  3. EPIRUBICIN HYDROCHLORIDE [Suspect]
     Active Substance: EPIRUBICIN HYDROCHLORIDE
     Indication: Ewing^s sarcoma
     Dosage: 100 MG, ONCE DAILY
     Route: 042
     Dates: start: 20220415, end: 20220415
  4. VINDESINE SULFATE [Suspect]
     Active Substance: VINDESINE SULFATE
     Indication: Ewing^s sarcoma
     Dosage: 3 MG, ONCE DAILY, D1
     Route: 042
     Dates: start: 20220415, end: 20220415

REACTIONS (1)
  - Myelosuppression [Recovering/Resolving]

NARRATIVE: CASE EVENT DATE: 20220419
